FAERS Safety Report 24880021 (Version 2)
Quarter: 2025Q1

REPORT INFORMATION
  Report Type: Spontaneous
  Country: US (occurrence: US)
  Receive Date: 20250123
  Receipt Date: 20250123
  Transmission Date: 20250409
  Serious: No
  Sender: PFIZER
  Company Number: US-PFIZER INC-PV202500006782

PATIENT
  Sex: Female

DRUGS (2)
  1. SODIUM BICARBONATE [Suspect]
     Active Substance: SODIUM BICARBONATE
     Indication: Local anaesthesia
  2. EPINEPHRINE\LIDOCAINE HYDROCHLORIDE [Suspect]
     Active Substance: EPINEPHRINE\LIDOCAINE HYDROCHLORIDE
     Indication: Local anaesthesia

REACTIONS (2)
  - Injection site pain [Unknown]
  - Injection site swelling [Unknown]
